FAERS Safety Report 9319378 (Version 1)
Quarter: 2013Q2

REPORT INFORMATION
  Report Type: Report from Study
  Country: UA (occurrence: UA)
  Receive Date: 20130530
  Receipt Date: 20130530
  Transmission Date: 20140414
  Serious: Yes (Life-Threatening)
  Sender: FDA-Public Use
  Company Number: UA-TEVA-303137ISR

PATIENT
  Age: 71 Year
  Sex: Female
  Weight: 79.3 kg

DRUGS (15)
  1. TL011 [Suspect]
     Indication: DIFFUSE LARGE B-CELL LYMPHOMA
     Dosage: DOUBLE BLIND: TL011  IV VS. MABTHERA
     Route: 042
     Dates: start: 20110803, end: 20120915
  2. RITUXIMAB [Suspect]
     Indication: DIFFUSE LARGE B-CELL LYMPHOMA
     Dosage: DOUBLE BLIND: TL011 VS. MABTHERA
     Route: 042
     Dates: start: 20110803
  3. VINCRISTINE [Suspect]
     Dates: start: 20110915
  4. DOXORUBICIN [Suspect]
     Dates: start: 20110915
  5. CYCLOPHOSPHAMIDE [Suspect]
     Dates: start: 20110915
  6. DIPHENHYDRAMINE [Concomitant]
     Indication: PREMEDICATION
     Dosage: .05 GRAM DAILY;
     Route: 042
     Dates: start: 20110825, end: 20110825
  7. DIPHENHYDRAMINE [Concomitant]
     Dosage: .05 GRAM DAILY;
     Route: 042
     Dates: start: 20110915, end: 20110915
  8. ONDANSETRON [Concomitant]
     Indication: PROPHYLAXIS
     Dosage: 8 MILLIGRAM DAILY;
     Route: 042
     Dates: start: 20110825, end: 20110825
  9. ONDANSETRON [Concomitant]
     Dosage: 8 MILLIGRAM DAILY;
     Route: 042
     Dates: start: 20110915, end: 20110915
  10. TRIMETAZIDINE HYDROCHLORIDE [Concomitant]
     Indication: MYOCARDIAL ISCHAEMIA
     Dosage: 70 MILLIGRAM DAILY;
     Route: 048
     Dates: start: 20110719, end: 20110922
  11. FAMOTIDINE [Concomitant]
     Indication: PROPHYLAXIS AGAINST GASTROINTESTINAL ULCER
     Dosage: 40 MILLIGRAM DAILY;
     Route: 048
     Dates: start: 20110825, end: 20110829
  12. FAMOTIDINE [Concomitant]
     Dosage: 40 MILLIGRAM DAILY;
     Route: 048
     Dates: start: 20110915, end: 20110919
  13. PARACETAMOL [Concomitant]
     Indication: PREMEDICATION
     Dosage: 1 GRAM DAILY;
     Route: 048
     Dates: start: 20110825, end: 20110825
  14. PARACETAMOL [Concomitant]
     Dosage: 1 GRAM DAILY;
     Route: 048
     Dates: start: 20110915, end: 20110915
  15. BERLITHION [Concomitant]
     Indication: PARAESTHESIA
     Dosage: 600 IU (INTERNATIONAL UNIT) DAILY;
     Route: 048
     Dates: start: 20110821, end: 20110922

REACTIONS (1)
  - Hypokalaemia [Recovered/Resolved]
